FAERS Safety Report 6903614-X (Version None)
Quarter: 2010Q3

REPORT INFORMATION
  Report Type: 
  Country: None (occurrence: None)
  Receive Date: 20100803
  Receipt Date: 20081027
  Transmission Date: 20110219
  Serious: No
  Sender: FDA-Public Use
  Company Number: US-PFIZER INC-2008077953

PATIENT
  Sex: Female
  Weight: 43.2 kg

DRUGS (4)
  1. LYRICA [Suspect]
     Indication: FIBROMYALGIA
     Dosage: AT BADTIEM DAILY
     Dates: start: 20080828
  2. DIGOXIN [Concomitant]
  3. NEURONTIN [Concomitant]
  4. FLEXERIL [Concomitant]

REACTIONS (1)
  - URINE OUTPUT DECREASED [None]
